FAERS Safety Report 5059160-4 (Version None)
Quarter: 2006Q3

REPORT INFORMATION
  Report Type: 
  Country: None (occurrence: None)
  Receive Date: 20060718
  Receipt Date: 20060710
  Transmission Date: 20061208
  Serious: Yes (Other)
  Sender: FDA-Public Use
  Company Number: 2006076133

PATIENT
  Age: 21 Year
  Sex: Male
  Weight: 72.5755 kg

DRUGS (3)
  1. PURELL WITH ALOE (ETHYL ALCOHOL) [Suspect]
     Indication: ANTIBIOTIC PROPHYLAXIS
     Dosage: ONCE TOPICAL
     Route: 061
     Dates: start: 20060101, end: 20060101
  2. VALPROATE SODIUM [Concomitant]
  3. CLOAZEPAM(CLONAZEPAM) [Concomitant]

REACTIONS (3)
  - APPLICATION SITE IRRITATION [None]
  - APPLICATION SITE VESICLES [None]
  - CAUSTIC INJURY [None]
